FAERS Safety Report 7591036-0 (Version None)
Quarter: 2011Q3

REPORT INFORMATION
  Report Type: 
  Country: None (occurrence: None)
  Receive Date: 20110705
  Receipt Date: 20110629
  Transmission Date: 20111222
  Serious: Yes (Other)
  Sender: FDA-Public Use
  Company Number: BR-PFIZER INC-2010137869

PATIENT
  Sex: Female
  Weight: 60 kg

DRUGS (9)
  1. VALDOXAN [Concomitant]
     Indication: DEPRESSION
  2. GEODON [Suspect]
     Indication: SCHIZOPHRENIA
     Dosage: 160MG DAILY (UNSPECIFIED FREQUENCY)
     Route: 048
     Dates: start: 20070101
  3. LISADOR [Concomitant]
     Dosage: UNK
  4. PLANTABEN [Concomitant]
     Dosage: UNK
  5. NEOZINE [Concomitant]
     Dosage: UNK
  6. SPIRONOLACTONE [Concomitant]
     Dosage: 100 MG, UNK
  7. OMEPRAZOLE [Concomitant]
     Dosage: 40 MG, UNK
  8. PAROXETINE [Concomitant]
     Dosage: 20 MG, UNK
  9. CLONAZEPAM [Concomitant]
     Indication: SLEEP DISORDER
     Dosage: 2 MG, UNK

REACTIONS (4)
  - WEIGHT DECREASED [None]
  - LIVER FUNCTION TEST ABNORMAL [None]
  - BLOOD CHOLESTEROL INCREASED [None]
  - CHEST PAIN [None]
